FAERS Safety Report 5607766-3 (Version None)
Quarter: 2008Q1

REPORT INFORMATION
  Report Type: 
  Country: None (occurrence: None)
  Receive Date: 20080130
  Receipt Date: 20080124
  Transmission Date: 20080703
  Serious: Yes (Disabling)
  Sender: FDA-Public Use
  Company Number: JP-BAYER-200810074BYL

PATIENT
  Age: 73 Year
  Sex: Male

DRUGS (2)
  1. ASPIRIN [Suspect]
     Route: 048
     Dates: start: 20070201
  2. CLOPIDOGREL [Suspect]
     Route: 048
     Dates: start: 20070201

REACTIONS (2)
  - HYPHAEMA [None]
  - RETINAL HAEMORRHAGE [None]
